FAERS Safety Report 5497178-8 (Version None)
Quarter: 2007Q4

REPORT INFORMATION
  Report Type: 
  Country: None (occurrence: None)
  Receive Date: 20071025
  Receipt Date: 20060901
  Transmission Date: 20080405
  Serious: No
  Sender: FDA-Public Use
  Company Number: A0618940A

PATIENT
  Age: 71 Year
  Sex: Female

DRUGS (6)
  1. ADVAIR DISKUS 100/50 [Suspect]
     Indication: EMPHYSEMA
     Dosage: 1PUFF TWICE PER DAY
     Route: 055
     Dates: start: 20060301
  2. SPIRIVA [Concomitant]
  3. ACTONEL [Concomitant]
  4. ATENOLOL [Concomitant]
  5. NAPROXEN [Concomitant]
  6. VITAMINS [Concomitant]

REACTIONS (3)
  - DYSGEUSIA [None]
  - DYSPHONIA [None]
  - PHARMACEUTICAL PRODUCT COMPLAINT [None]
